FAERS Safety Report 12979788 (Version 2)
Quarter: 2017Q1

REPORT INFORMATION
  Report Type: Spontaneous
  Country: DE (occurrence: DE)
  Receive Date: 20161128
  Receipt Date: 20170310
  Transmission Date: 20170428
  Serious: Yes (Hospitalization)
  Sender: FDA-Public Use
  Company Number: DE-TEVA-713772GER

PATIENT
  Age: 22 Year
  Sex: Female

DRUGS (1)
  1. ETHINYLESTRADIOL W/LEVONORGESTREL [Suspect]
     Active Substance: ETHINYL ESTRADIOL\LEVONORGESTREL
     Indication: CHEMICAL CONTRACEPTION
     Dosage: 30MICROG ETHINYLESTRADIOL / 125MICROG LEVONORGESTREL
     Route: 065
     Dates: start: 20150802, end: 20150816

REACTIONS (1)
  - Cholestasis [Recovered/Resolved]
